FAERS Safety Report 22146055 (Version 1)
Quarter: 2023Q1

REPORT INFORMATION
  Report Type: Spontaneous
  Country: JP (occurrence: JP)
  Receive Date: 20230328
  Receipt Date: 20230328
  Transmission Date: 20230417
  Serious: Yes (Death, Other)
  Sender: FDA-Public Use
  Company Number: JP-MH-2023M1030860AA

PATIENT
  Age: 65 Year
  Sex: Male

DRUGS (15)
  1. CARBOPLATIN [Suspect]
     Active Substance: CARBOPLATIN
     Indication: Squamous cell carcinoma
     Dosage: AS A PART OF FIFTH LINE CHEMOTHERAPY
     Route: 065
  2. CARBOPLATIN [Suspect]
     Active Substance: CARBOPLATIN
     Dosage: AS A PART OF SEVENTH LINE CHEMOTHERAPY
     Route: 065
  3. CISPLATIN [Suspect]
     Active Substance: CISPLATIN
     Indication: Squamous cell carcinoma
     Dosage: AS A PART OF FIRST LINE CHEMOTHERAPY
     Route: 065
  4. GEMCITABINE [Suspect]
     Active Substance: GEMCITABINE
     Indication: Squamous cell carcinoma
     Dosage: AS A PART OF FIRST LINE CHEMOTHERAPY
     Route: 065
  5. DOCETAXEL [Suspect]
     Active Substance: DOCETAXEL
     Indication: Squamous cell carcinoma
     Dosage: AS A PART OF SECOND LINE CHEMOTHERAPY
     Route: 065
  6. RAMUCIRUMAB [Suspect]
     Active Substance: RAMUCIRUMAB
     Indication: Squamous cell carcinoma
     Dosage: AS A PART OF SECOND LINE CHEMOTHERAPY
     Route: 065
  7. RAMUCIRUMAB [Suspect]
     Active Substance: RAMUCIRUMAB
     Dosage: AS A PART OF THIRD LINE CHEMOTHERAPY
     Route: 065
  8. GIMERACIL\OTERACIL\TEGAFUR [Suspect]
     Active Substance: GIMERACIL\OTERACIL\TEGAFUR
     Indication: Squamous cell carcinoma
     Dosage: AS A PART OF THIRD LINE CHEMOTHERAPY
     Route: 065
  9. NIVOLUMAB [Suspect]
     Active Substance: NIVOLUMAB
     Indication: Squamous cell carcinoma
     Dosage: 120 MILLIGRAM, AS A PART OF FOURTH LINE CHEMOTHERAPY
     Route: 065
  10. NIVOLUMAB [Suspect]
     Active Substance: NIVOLUMAB
     Dosage: AS A PART OF SIXTH LINE CHEMOTHERAPY
     Route: 065
  11. NIVOLUMAB [Suspect]
     Active Substance: NIVOLUMAB
     Dosage: AS A PART OF EIGHT LINE CHEMOTHERAPY
     Route: 065
  12. PACLITAXEL [Suspect]
     Active Substance: PACLITAXEL
     Indication: Squamous cell carcinoma
     Dosage: AS A PART OF FIFTH LINE CHEMOTHERAPY
     Route: 065
  13. PACLITAXEL [Suspect]
     Active Substance: PACLITAXEL
     Dosage: AS A PART OF SEVENTH LINE CHEMOTHERAPY
     Route: 065
  14. PREDNISOLONE [Concomitant]
     Active Substance: PREDNISOLONE
     Indication: Pneumonia
     Dosage: 25 MILLIGRAM, QD
     Route: 048
  15. PREDNISOLONE [Concomitant]
     Active Substance: PREDNISOLONE
     Dosage: 5 MILLIGRAM, QD
     Route: 048

REACTIONS (2)
  - Drug ineffective [Fatal]
  - Disease progression [Unknown]
